FAERS Safety Report 19924832 (Version 3)
Quarter: 2023Q2

REPORT INFORMATION
  Report Type: Report from Study
  Country: US (occurrence: US)
  Receive Date: 20211006
  Receipt Date: 20230412
  Transmission Date: 20230721
  Serious: No
  Sender: FDA-Public Use
  Company Number: US-KYOWAKIRIN-2021BKK016465

PATIENT

DRUGS (1)
  1. BUROSUMAB [Suspect]
     Active Substance: BUROSUMAB
     Indication: Hereditary hypophosphataemic rickets
     Dosage: 20 MG, 1X/2 WEEKS
     Route: 065
     Dates: start: 20210412

REACTIONS (3)
  - Bone pain [Unknown]
  - Pain [Unknown]
  - Influenza [Unknown]

NARRATIVE: CASE EVENT DATE: 20210915
